FAERS Safety Report 11888315 (Version 1)
Quarter: 2016Q1

REPORT INFORMATION
  Report Type: Spontaneous
  Country: US (occurrence: None)
  Receive Date: 20160104
  Receipt Date: 20160104
  Transmission Date: 20160526
  Serious: No
  Sender: FDA-Public Use
  Company Number: None

PATIENT
  Age: 66 Year
  Sex: Male
  Weight: 105.1 kg

DRUGS (1)
  1. ATORVASTATIN [Suspect]
     Active Substance: ATORVASTATIN
     Indication: HYPERCHOLESTEROLAEMIA
     Route: 048
     Dates: start: 20150808, end: 20150821

REACTIONS (5)
  - Myalgia [None]
  - Blood creatine phosphokinase increased [None]
  - Flank pain [None]
  - Myositis [None]
  - Muscle spasms [None]

NARRATIVE: CASE EVENT DATE: 20150821
